FAERS Safety Report 13778284 (Version 1)
Quarter: 2017Q3

REPORT INFORMATION
  Report Type: Spontaneous
  Country: US (occurrence: US)
  Receive Date: 20170721
  Receipt Date: 20170721
  Transmission Date: 20171127
  Serious: No
  Sender: FDA-Public Use
  Company Number: US-TEVA-694061USA

PATIENT
  Sex: Male

DRUGS (2)
  1. AMPHETAMINE W/DEXTROAMPHETAMINE [Suspect]
     Active Substance: AMPHETAMINE SULFATE\DEXTROAMPHETAMINE
     Indication: ATTENTION DEFICIT/HYPERACTIVITY DISORDER
     Dosage: 60 MILLIGRAM DAILY; ONCE AT 7AM AND ONCE AT 12 O^CLOCK NOON
     Route: 048
  2. AMPHETAMINE W/DEXTROAMPHETAMINE [Suspect]
     Active Substance: AMPHETAMINE SULFATE\DEXTROAMPHETAMINE
     Route: 048

REACTIONS (5)
  - Disturbance in attention [Unknown]
  - Memory impairment [Unknown]
  - Drug ineffective [Unknown]
  - Impaired work ability [Unknown]
  - Product substitution issue [Unknown]
